FAERS Safety Report 5707123-5 (Version None)
Quarter: 2008Q2

REPORT INFORMATION
  Report Type: 
  Country: None (occurrence: None)
  Receive Date: 20080416
  Receipt Date: 20080408
  Transmission Date: 20081010
  Serious: Yes (Death, Hospitalization, Other)
  Sender: FDA-Public Use
  Company Number: CA-ROCHE-542760

PATIENT
  Sex: Female
  Weight: 65 kg

DRUGS (5)
  1. PEGASYS [Suspect]
     Indication: HEPATITIS C
     Dosage: FORM REPORTED: VIAL
     Route: 058
     Dates: start: 20071109, end: 20080302
  2. RIBAVIRIN [Suspect]
     Indication: HEPATITIS C
     Dosage: DOSAGE REPORTED: 5XOD
     Route: 048
     Dates: start: 20071109, end: 20080101
  3. RIBAVIRIN [Suspect]
     Dosage: DOSAGE: 3X OD
     Route: 048
     Dates: start: 20080102, end: 20080131
  4. EPREX [Concomitant]
     Route: 042
     Dates: end: 20080302
  5. IMMOVANE [Concomitant]
     Indication: INSOMNIA
     Dosage: FORMULATION REPORTED AS: HS.
     Route: 048
     Dates: end: 20080302

REACTIONS (4)
  - ESCHERICHIA SEPSIS [None]
  - HAEMOGLOBIN DECREASED [None]
  - PLATELET COUNT DECREASED [None]
  - UTERINE POLYP [None]
